FAERS Safety Report 7260695-4 (Version None)
Quarter: 2011Q1

REPORT INFORMATION
  Report Type: 
  Country: None (occurrence: None)
  Receive Date: 20110130
  Receipt Date: 20101216
  Transmission Date: 20110831
  Serious: No
  Sender: FDA-Public Use
  Company Number: US-ABBOTT-10P-163-0693019-00

PATIENT
  Age: 47 Year
  Sex: Female

DRUGS (4)
  1. BENICAR [Concomitant]
     Indication: HYPERTENSION
  2. TYLENOL PM [Concomitant]
     Indication: INSOMNIA
  3. XANAX [Concomitant]
     Indication: DEPRESSION
  4. HUMIRA [Suspect]
     Indication: ANKYLOSING SPONDYLITIS
     Dates: start: 20100901

REACTIONS (8)
  - FEELING COLD [None]
  - ABASIA [None]
  - MUSCULAR WEAKNESS [None]
  - FATIGUE [None]
  - FEELING HOT [None]
  - FALL [None]
  - BACK PAIN [None]
  - INCONTINENCE [None]
